FAERS Safety Report 7341552-1 (Version None)
Quarter: 2011Q1

REPORT INFORMATION
  Report Type: 
  Country: None (occurrence: None)
  Receive Date: 20110309
  Receipt Date: 20110305
  Transmission Date: 20110831
  Serious: Yes (Hospitalization)
  Sender: FDA-Public Use
  Company Number: US-ABBOTT-11P-163-0697672-00

PATIENT
  Sex: Female
  Weight: 81.72 kg

DRUGS (28)
  1. POTASSIUM CHLORIDE [Concomitant]
     Indication: MINERAL SUPPLEMENTATION
  2. METFORMIN [Concomitant]
     Indication: DIABETES MELLITUS
  3. LIPITOR [Concomitant]
     Indication: BLOOD CHOLESTEROL INCREASED
     Dosage: AT BEDTIME
  4. METOPROLOL [Concomitant]
     Indication: HYPERTENSION
  5. ACIPHEX [Concomitant]
     Indication: GASTROOESOPHAGEAL REFLUX DISEASE
  6. NITROGLYCERIN [Concomitant]
     Indication: CHEST PAIN
  7. REDUALUIT PLUS [Concomitant]
     Indication: MINERAL SUPPLEMENTATION
  8. GLIPIZIDE [Concomitant]
     Indication: GLUCOSE TOLERANCE IMPAIRED
     Dosage: 1/2 TABLET DAILY
  9. SPIRIVA [Concomitant]
     Indication: DYSPNOEA
  10. PROMETHAZINE [Concomitant]
     Indication: NAUSEA
  11. ACCUPRIL [Concomitant]
     Indication: HYPERTENSION
  12. CITALOPRAM [Concomitant]
     Indication: DEPRESSION
  13. FLUOXETINE [Concomitant]
     Indication: ANXIETY
  14. PREDNISONE TAB [Concomitant]
  15. XOPENEX [Concomitant]
     Indication: CHRONIC OBSTRUCTIVE PULMONARY DISEASE
  16. HUMIRA [Suspect]
     Dates: start: 20110201
  17. ALBUTEROL [Concomitant]
     Indication: CHRONIC OBSTRUCTIVE PULMONARY DISEASE
  18. TRAMADOL HCL [Concomitant]
     Indication: ARTHRALGIA
  19. ADVAIR DISKUS 100/50 [Concomitant]
     Indication: CHRONIC OBSTRUCTIVE PULMONARY DISEASE
  20. ISOSORBID [Concomitant]
     Indication: HYPERTENSION
  21. FUROSEMIDE [Concomitant]
     Indication: FLUID RETENTION
  22. HUMIRA [Suspect]
     Dates: start: 20110115
  23. HUMIRA [Suspect]
     Indication: RHEUMATOID ARTHRITIS
     Dates: start: 20050101, end: 20100501
  24. PLAVIX [Concomitant]
     Indication: THROMBOSIS PROPHYLAXIS
  25. PLAVIX [Concomitant]
     Indication: MYOCARDIAL INFARCTION
  26. LISINOPRIL [Concomitant]
     Indication: HYPERTENSION
  27. ALBUTEROL [Concomitant]
     Indication: DYSPNOEA
     Dosage: NEBULIZER
     Route: 055
  28. PREDNISONE TAB [Concomitant]
     Indication: RHEUMATOID ARTHRITIS
     Dates: start: 20101201

REACTIONS (14)
  - VOMITING [None]
  - GASTROOESOPHAGEAL REFLUX DISEASE [None]
  - GASTRIC DISORDER [None]
  - FLUID RETENTION [None]
  - GOUT [None]
  - COUGH [None]
  - PARANASAL SINUS HYPERSECRETION [None]
  - CHEST PAIN [None]
  - JOINT STIFFNESS [None]
  - ARTHRALGIA [None]
  - VERTIGO [None]
  - JOINT SWELLING [None]
  - DIARRHOEA [None]
  - PYREXIA [None]
